FAERS Safety Report 10912165 (Version 1)
Quarter: 2015Q1

REPORT INFORMATION
  Report Type: Spontaneous
  Country: US (occurrence: None)
  Receive Date: 20150310
  Receipt Date: 20150310
  Transmission Date: 20150721
  Serious: No
  Sender: FDA-Public Use
  Company Number: None

PATIENT
  Age: 21 Year
  Sex: Female

DRUGS (3)
  1. BACTRIM DS [Suspect]
     Active Substance: SULFAMETHOXAZOLE\TRIMETHOPRIM
     Indication: ACNE
     Dosage: 1 TABLET
     Route: 048
     Dates: start: 20150303, end: 20150303
  2. LEVOTHYROXINE 25MCG [Concomitant]
  3. HAIRNAILS AND SKIN VITAMING FROM NATURE MADE MANUFACTURE [Concomitant]

REACTIONS (10)
  - Ocular discomfort [None]
  - Dizziness [None]
  - Head discomfort [None]
  - Rash [None]
  - Headache [None]
  - Discomfort [None]
  - Chills [None]
  - Asthenia [None]
  - Chest discomfort [None]
  - Body temperature increased [None]

NARRATIVE: CASE EVENT DATE: 20150304
